FAERS Safety Report 21227357 (Version 1)
Quarter: 2022Q3

REPORT INFORMATION
  Report Type: Spontaneous
  Country: IT (occurrence: IT)
  Receive Date: 20220818
  Receipt Date: 20220818
  Transmission Date: 20221026
  Serious: Yes (Death, Other)
  Sender: FDA-Public Use
  Company Number: IT-MYLANLABS-2022M1086565

PATIENT
  Age: 33 Year
  Sex: Female

DRUGS (8)
  1. PACLITAXEL [Suspect]
     Active Substance: PACLITAXEL
     Indication: Thymic carcinoma
     Dosage: UNK
     Route: 065
     Dates: start: 201907
  2. CARBOPLATIN [Suspect]
     Active Substance: CARBOPLATIN
     Indication: Thymic carcinoma
     Dosage: UNK
     Route: 065
     Dates: start: 201907
  3. AVELUMAB [Suspect]
     Active Substance: AVELUMAB
     Indication: Thymic carcinoma
     Dosage: UNK
     Route: 065
     Dates: start: 201911
  4. AXITINIB [Suspect]
     Active Substance: AXITINIB
     Indication: Thymic carcinoma
     Dosage: UNK
     Route: 065
     Dates: start: 201911
  5. IFOSFAMIDE [Suspect]
     Active Substance: IFOSFAMIDE
     Indication: Thymic carcinoma
     Dosage: UNK
     Route: 065
  6. IPILIMUMAB [Suspect]
     Active Substance: IPILIMUMAB
     Indication: Thymic carcinoma
     Dosage: 1 MILLIGRAM/KILOGRAM
     Route: 065
     Dates: start: 202201
  7. NIVOLUMAB [Suspect]
     Active Substance: NIVOLUMAB
     Indication: Thymic carcinoma
     Dosage: 3 MILLIGRAM/KILOGRAM
     Route: 065
     Dates: start: 202201
  8. AVAPRITINIB [Concomitant]
     Active Substance: AVAPRITINIB
     Indication: Thymic carcinoma
     Dosage: 300 MILLIGRAM, QD
     Route: 065
     Dates: start: 202011

REACTIONS (2)
  - Drug ineffective [Fatal]
  - Disease progression [Unknown]
